FAERS Safety Report 7953822-4 (Version None)
Quarter: 2011Q4

REPORT INFORMATION
  Report Type: 
  Country: None (occurrence: None)
  Receive Date: 20111202
  Receipt Date: 20111125
  Transmission Date: 20120403
  Serious: Yes (Other)
  Sender: FDA-Public Use
  Company Number: FR-UCBSA-046516

PATIENT
  Sex: Female

DRUGS (2)
  1. CIMZIA [Suspect]
     Route: 058
     Dates: start: 20110101, end: 20110101
  2. METHOTREXATE [Concomitant]
     Dosage: 20 MG
     Dates: end: 20110101

REACTIONS (1)
  - NEUTROPENIA [None]
